FAERS Safety Report 11391642 (Version 4)
Quarter: 2016Q1

REPORT INFORMATION
  Report Type: Report from Study
  Country: US (occurrence: US)
  Receive Date: 20150818
  Receipt Date: 20160222
  Transmission Date: 20160525
  Serious: Yes (Hospitalization)
  Sender: FDA-Public Use
  Company Number: US-EISAI MEDICAL RESEARCH-EC-2015-009197

PATIENT
  Age: 71 Year
  Sex: Female
  Weight: 81.6 kg

DRUGS (24)
  1. LEVOTHYROXINE. [Concomitant]
     Active Substance: LEVOTHYROXINE
  2. HYDRALAZINE [Concomitant]
     Active Substance: HYDRALAZINE HYDROCHLORIDE
  3. CLONIDINE. [Concomitant]
     Active Substance: CLONIDINE
  4. ATORVASTATIN [Concomitant]
     Active Substance: ATORVASTATIN
  5. NAMENDA [Concomitant]
     Active Substance: MEMANTINE HYDROCHLORIDE
  6. BENICAR [Concomitant]
     Active Substance: OLMESARTAN MEDOXOMIL
  7. TRAMADOL. [Concomitant]
     Active Substance: TRAMADOL
  8. POTASSIUM CHLORIDE. [Concomitant]
     Active Substance: POTASSIUM CHLORIDE
  9. SINGULAIR [Concomitant]
     Active Substance: MONTELUKAST SODIUM
  10. METFORMIN [Concomitant]
     Active Substance: METFORMIN HYDROCHLORIDE
  11. CLONAZEPAM. [Concomitant]
     Active Substance: CLONAZEPAM
  12. PROCARDIA [Concomitant]
     Active Substance: NIFEDIPINE
  13. PROAIR HFA [Concomitant]
     Active Substance: ALBUTEROL SULFATE
  14. PREDNISONE. [Concomitant]
     Active Substance: PREDNISONE
  15. MVI [Concomitant]
     Active Substance: VITAMINS
  16. TYLENOL [Concomitant]
     Active Substance: ACETAMINOPHEN
  17. OMEPRAZOLE. [Concomitant]
     Active Substance: OMEPRAZOLE
  18. LENVIMA [Suspect]
     Active Substance: LENVATINIB
     Indication: THYROID CANCER
     Route: 048
     Dates: start: 20150728, end: 20150807
  19. LENVIMA [Suspect]
     Active Substance: LENVATINIB
     Route: 048
     Dates: start: 201508
  20. ZYRTEC [Concomitant]
     Active Substance: CETIRIZINE HYDROCHLORIDE
  21. OLANZAPINE. [Concomitant]
     Active Substance: OLANZAPINE
  22. NASONEX [Concomitant]
     Active Substance: MOMETASONE FUROATE
  23. BUPROPION. [Concomitant]
     Active Substance: BUPROPION
  24. ARTHRITIS PAIN TABLET [Concomitant]

REACTIONS (6)
  - Stomatitis [Recovered/Resolved]
  - Pain of skin [Unknown]
  - Haematochezia [Unknown]
  - Blood pressure increased [Unknown]
  - Localised infection [Unknown]
  - Oral pain [Unknown]

NARRATIVE: CASE EVENT DATE: 2015
